FAERS Safety Report 26035889 (Version 1)
Quarter: 2025Q4

REPORT INFORMATION
  Report Type: Spontaneous
  Country: US (occurrence: None)
  Receive Date: 20251112
  Receipt Date: 20251112
  Transmission Date: 20260117
  Serious: Yes (Hospitalization)
  Sender: FDA-CTU
  Company Number: None

PATIENT
  Age: 39 Year
  Sex: Male

DRUGS (1)
  1. ENBREL [Suspect]
     Active Substance: ETANERCEPT
     Indication: Ankylosing spondylitis
     Dosage: 50 MG EVERY 7 DAYS SUBCUTANEOUS?
     Route: 058

REACTIONS (3)
  - Ankylosing spondylitis [None]
  - Colitis ulcerative [None]
  - Therapy change [None]

NARRATIVE: CASE EVENT DATE: 20251030
